FAERS Safety Report 8471432-X (Version None)
Quarter: 2012Q2

REPORT INFORMATION
  Report Type: 
  Country: None (occurrence: None)
  Receive Date: 20120627
  Receipt Date: 20120620
  Transmission Date: 20120825
  Serious: Yes (Hospitalization, Other)
  Sender: FDA-Public Use
  Company Number: PHHY2012CA053891

PATIENT
  Sex: Male

DRUGS (9)
  1. ALLOPURINOL [Concomitant]
     Dosage: 100 MG, QD
  2. VALPROATE SODIUM [Concomitant]
     Dosage: 500 MG QAM AND 750 MG QHS
  3. PANTOPRAZOLE SODIUM [Concomitant]
     Dosage: 40 MG, QAM
  4. COLACE [Concomitant]
     Dosage: 100 MG, BID
  5. CALCIUM CARBONATE [Concomitant]
     Dosage: 500 MG, TID
  6. CLOZAPINE [Suspect]
     Indication: BIPOLAR DISORDER
     Dosage: 50 MG QAM AND 200 MG QHS
     Dates: start: 20021021
  7. ROCALTROL [Concomitant]
     Dosage: 0.25 UG, QW3
  8. CARVEDILOL [Concomitant]
     Dosage: 25 MG, BID
  9. SODIUM BICARBONATE [Concomitant]
     Dosage: 975 MG, BID

REACTIONS (21)
  - WHITE BLOOD CELL COUNT DECREASED [None]
  - PLATELET COUNT DECREASED [None]
  - HALLUCINATION, VISUAL [None]
  - HAEMOGLOBIN DECREASED [None]
  - RED BLOOD CELL COUNT DECREASED [None]
  - MANIA [None]
  - BLOOD CREATININE INCREASED [None]
  - BASE EXCESS DECREASED [None]
  - BLOOD BICARBONATE INCREASED [None]
  - GLOMERULAR FILTRATION RATE DECREASED [None]
  - HAEMATOCRIT DECREASED [None]
  - AGITATION [None]
  - URINARY TRACT INFECTION [None]
  - PCO2 DECREASED [None]
  - SPEECH DISORDER [None]
  - BLOOD SODIUM INCREASED [None]
  - BLOOD UREA INCREASED [None]
  - LYMPHOCYTE COUNT DECREASED [None]
  - URINE ALBUMIN/CREATININE RATIO INCREASED [None]
  - POOR QUALITY SLEEP [None]
  - BLOOD CALCIUM DECREASED [None]
